FAERS Safety Report 5209854-2 (Version None)
Quarter: 2006Q4

REPORT INFORMATION
  Report Type: 
  Country: None (occurrence: None)
  Receive Date: 20061130
  Receipt Date: 20060811
  Transmission Date: 20070319
  Serious: Yes (Hospitalization, Other)
  Sender: FDA-Public Use
  Company Number: 2006097799

PATIENT
  Sex: Male

DRUGS (8)
  1. ZYVOX [Suspect]
     Indication: OSTEOMYELITIS
  2. PROZAC [Suspect]
     Indication: DRUG USE FOR UNKNOWN INDICATION
     Dosage: 20 MG (20 MG, 1 IN 1 D)
  3. METRONIDAZOLE [Concomitant]
  4. INFLAM (IBUPROFEN) [Concomitant]
  5. TOPROL-XL [Concomitant]
  6. SPIRIVA [Concomitant]
  7. PROCARDIA [Concomitant]
  8. COLACE (DOCUSATE SODIUM) [Concomitant]

REACTIONS (6)
  - CONFUSIONAL STATE [None]
  - DIARRHOEA [None]
  - DRUG INTERACTION [None]
  - MUSCLE TWITCHING [None]
  - NAUSEA [None]
  - SEROTONIN SYNDROME [None]
